FAERS Safety Report 17614242 (Version 3)
Quarter: 2020Q2

REPORT INFORMATION
  Report Type: Spontaneous
  Country: BR (occurrence: BR)
  Receive Date: 20200402
  Receipt Date: 20200528
  Transmission Date: 20200713
  Serious: Yes (Hospitalization, Other)
  Sender: FDA-Public Use
  Company Number: BR-ADVANZ PHARMA-202003002062

PATIENT

DRUGS (4)
  1. INFLUENZA [Concomitant]
     Active Substance: INFLUENZA VIRUS VACCINE
     Dosage: UNK
     Dates: start: 2019
  2. HYDROXYCHLOROQUINE [Suspect]
     Active Substance: HYDROXYCHLOROQUINE
     Indication: ARTHRITIS
     Dosage: COATED TABLET1 DOSAGE FORM, QD
     Route: 048
  3. ARADOIS [Concomitant]
     Active Substance: LOSARTAN POTASSIUM
     Dosage: 50 MG
     Dates: start: 2020
  4. HYDROXYCHLOROQUINE [Suspect]
     Active Substance: HYDROXYCHLOROQUINE
     Indication: SYSTEMIC LUPUS ERYTHEMATOSUS
     Dosage: 1 DOSAGE FORM, QD COATED TABLET
     Route: 048
     Dates: start: 2010, end: 2019

REACTIONS (11)
  - Off label use [Unknown]
  - Emotional disorder [Recovered/Resolved]
  - Calculus bladder [Unknown]
  - Abdominal pain [Unknown]
  - Herpes zoster [Recovered/Resolved]
  - Decreased immune responsiveness [Unknown]
  - Herpes virus infection [Unknown]
  - Cholecystectomy [Recovering/Resolving]
  - Anxiety [Recovered/Resolved]
  - Arthropathy [Unknown]
  - Gait disturbance [Recovered/Resolved]

NARRATIVE: CASE EVENT DATE: 2010
